FAERS Safety Report 6964154-5 (Version None)
Quarter: 2010Q3

REPORT INFORMATION
  Report Type: 
  Country: None (occurrence: None)
  Receive Date: 20100903
  Receipt Date: 20100825
  Transmission Date: 20110219
  Serious: Yes (Hospitalization)
  Sender: FDA-Public Use
  Company Number: IT-BIOGENIDEC-2010BI021117

PATIENT
  Age: 34 Year
  Sex: Female

DRUGS (9)
  1. TYSABRI [Suspect]
     Indication: RELAPSING-REMITTING MULTIPLE SCLEROSIS
     Route: 042
     Dates: start: 20091014, end: 20100101
  2. TYSABRI [Suspect]
     Dates: start: 20100201, end: 20100705
  3. L-TIROXINE [Concomitant]
     Dosage: DOSE UNIT:50
  4. GABAPENTIN [Concomitant]
     Route: 048
     Dates: start: 20060110, end: 20100705
  5. OMEPRAZOLE [Concomitant]
  6. BACLOFEN [Concomitant]
     Route: 048
     Dates: start: 20070210, end: 20100705
  7. SERTRALINE HYDROCHLORIDE [Concomitant]
     Route: 048
     Dates: start: 20060510, end: 20100705
  8. TROSPIUM CLORURE [Concomitant]
  9. 4-AMINOPIRIDINE [Concomitant]

REACTIONS (1)
  - CERVIX CARCINOMA STAGE III [None]
